FAERS Safety Report 25207029 (Version 1)
Quarter: 2025Q2

REPORT INFORMATION
  Report Type: Spontaneous
  Country: TW (occurrence: TW)
  Receive Date: 20250417
  Receipt Date: 20250417
  Transmission Date: 20250716
  Serious: Yes (Hospitalization, Other)
  Sender: SANOFI AVENTIS
  Company Number: TW-SA-2025SA110279

PATIENT
  Age: 36 Year
  Sex: Female
  Weight: 80 kg

DRUGS (13)
  1. GLIMEPIRIDE [Suspect]
     Active Substance: GLIMEPIRIDE
     Indication: Diabetes mellitus
     Dosage: 2 MG, QD
     Route: 048
     Dates: start: 20240415, end: 20250305
  2. VALPROATE SODIUM [Concomitant]
     Active Substance: VALPROATE SODIUM
     Dosage: 2 DF, QD
     Route: 048
     Dates: start: 20240416
  3. VALPROATE SODIUM [Concomitant]
     Active Substance: VALPROATE SODIUM
     Dosage: 1 DF, BID
     Route: 048
     Dates: start: 20240416
  4. RIVOTRIL [Concomitant]
     Active Substance: CLONAZEPAM
     Dosage: 1 DF, QID
     Route: 048
     Dates: start: 20240416
  5. Fute [Concomitant]
     Dosage: 1 DF, TID
     Route: 048
     Dates: start: 20240416
  6. PROPRANOLOL [Concomitant]
     Active Substance: PROPRANOLOL HYDROCHLORIDE
     Dosage: 2 DF, TID
     Route: 048
     Dates: start: 20240416
  7. RITALIN [Concomitant]
     Active Substance: METHYLPHENIDATE HYDROCHLORIDE
     Indication: Attention deficit hyperactivity disorder
     Dosage: 1 DF, BID
     Route: 048
     Dates: start: 20240416
  8. C.T.L [Concomitant]
     Indication: Diabetes mellitus
     Dosage: 500 MG, TID
     Route: 048
     Dates: start: 20240415, end: 20250305
  9. C.T.L [Concomitant]
     Dosage: 800 MG, BID
     Route: 048
     Dates: start: 20250305
  10. Through [Concomitant]
     Dosage: 2 DF, QD
     Route: 048
     Dates: start: 20240415
  11. Bipiden [Concomitant]
     Dosage: 2 MG, TID
     Route: 048
     Dates: start: 20240416
  12. ARIPIPRAZOLE [Concomitant]
     Active Substance: ARIPIPRAZOLE
     Indication: Schizoaffective disorder bipolar type
     Dosage: 5 MG, QD
     Route: 048
     Dates: start: 20240416
  13. CLOZARIL [Concomitant]
     Active Substance: CLOZAPINE
     Dosage: 100 MG, TID
     Route: 048
     Dates: start: 20240416

REACTIONS (3)
  - Hypoglycaemic coma [Recovered/Resolved]
  - Blood glucose decreased [Unknown]
  - Fatigue [Unknown]

NARRATIVE: CASE EVENT DATE: 20241117
